FAERS Safety Report 11716649 (Version 2)
Quarter: 2015Q4

REPORT INFORMATION
  Report Type: Spontaneous
  Country: AU (occurrence: AU)
  Receive Date: 20151109
  Receipt Date: 20151116
  Transmission Date: 20160304
  Serious: Yes (Hospitalization)
  Sender: FDA-Public Use
  Company Number: AU-OTSUKA-2015_011803

PATIENT
  Age: 75 Year
  Sex: Male
  Weight: 71 kg

DRUGS (3)
  1. DACOGEN [Suspect]
     Active Substance: DECITABINE
     Indication: MYELOID LEUKAEMIA
     Dosage: 20 MG/M2, DAY 1-5 IN 28 DAYS
     Route: 042
     Dates: start: 20150806
  2. PANTOPRAZOLE [Suspect]
     Active Substance: PANTOPRAZOLE SODIUM
     Indication: PROPHYLAXIS
     Dosage: 40 MG, 1 IN 1 DAY
     Route: 065
     Dates: start: 20150817
  3. AMPHOTERICIN B LIPOSOME [Suspect]
     Active Substance: AMPHOTERICIN B
     Indication: ANTIFUNGAL PROPHYLAXIS
     Dosage: 100 MG, 3 IN 1 WEEK
     Route: 042
     Dates: start: 20150817

REACTIONS (6)
  - Febrile neutropenia [Unknown]
  - Hypokalaemia [Unknown]
  - Liver function test abnormal [Unknown]
  - Staphylococcal infection [Unknown]
  - Lung consolidation [Unknown]
  - Anaemia [Unknown]

NARRATIVE: CASE EVENT DATE: 20150914
